FAERS Safety Report 8307687-1 (Version None)
Quarter: 2012Q2

REPORT INFORMATION
  Report Type: 
  Country: None (occurrence: None)
  Receive Date: 20120424
  Receipt Date: 20120424
  Transmission Date: 20120825
  Serious: Yes (Life-Threatening)
  Sender: FDA-Public Use
  Company Number: None

PATIENT
  Age: 78 Year
  Sex: Female
  Weight: 101.3 kg

DRUGS (1)
  1. OFIRMEV [Suspect]
     Indication: ANALGESIC THERAPY
     Dosage: 650.0 MG
     Route: 040
     Dates: start: 20120303, end: 20120303

REACTIONS (1)
  - BRONCHOSPASM [None]
